FAERS Safety Report 5117896-0 (Version None)
Quarter: 2006Q3

REPORT INFORMATION
  Report Type: 
  Country: None (occurrence: None)
  Receive Date: 20060929
  Receipt Date: 20060921
  Transmission Date: 20061208
  Serious: Yes (Hospitalization)
  Sender: FDA-Public Use
  Company Number: FR-ABBOTT-06P-056-0344623-00

PATIENT
  Sex: Female

DRUGS (2)
  1. VALPROATE SODIUM [Suspect]
     Indication: DRUG USE FOR UNKNOWN INDICATION
     Route: 065
     Dates: start: 20050101, end: 20050101
  2. VALPROATE SODIUM [Suspect]
     Route: 065
     Dates: start: 20060101, end: 20060101

REACTIONS (4)
  - COMA [None]
  - DRUG LEVEL INCREASED [None]
  - DRUG TOXICITY [None]
  - OPISTHOTONUS [None]
